FAERS Safety Report 12246528 (Version 3)
Quarter: 2016Q2

REPORT INFORMATION
  Report Type: Spontaneous
  Country: BR (occurrence: BR)
  Receive Date: 20160407
  Receipt Date: 20160510
  Transmission Date: 20160815
  Serious: Yes (Other)
  Sender: FDA-Public Use
  Company Number: PHHY2016BR043075

PATIENT
  Age: 72 Year
  Sex: Male
  Weight: 45 kg

DRUGS (2)
  1. RAZAPINA [Suspect]
     Active Substance: MIRTAZAPINE
     Indication: DEPRESSION
     Dosage: 7.5 MG, QD
     Route: 048
     Dates: start: 20160317
  2. ALENIA                             /01538101/ [Concomitant]
     Active Substance: BUDESONIDE\FORMOTEROL FUMARATE
     Indication: DYSPNOEA
     Route: 065

REACTIONS (5)
  - Urinary incontinence [Recovering/Resolving]
  - Dyskinesia [Recovering/Resolving]
  - Hypersomnia [Recovering/Resolving]
  - Hallucination [Recovering/Resolving]
  - Speech disorder [Recovering/Resolving]
